FAERS Safety Report 11967215 (Version 4)
Quarter: 2016Q3

REPORT INFORMATION
  Report Type: Spontaneous
  Country: CZ (occurrence: CZ)
  Receive Date: 20160127
  Receipt Date: 20160831
  Transmission Date: 20161109
  Serious: Yes (Hospitalization)
  Sender: FDA-Public Use
  Company Number: CZ-TAKEDA-2016MPI000434

PATIENT
  Age: 84 Year
  Sex: Male
  Weight: 71 kg

DRUGS (47)
  1. SORTIS [Concomitant]
     Active Substance: ATORVASTATIN
     Indication: LIVER DISORDER
  2. LEXAURIN [Concomitant]
     Active Substance: BROMAZEPAM
     Indication: PROPHYLAXIS
     Route: 065
  3. BURONIL [Concomitant]
     Active Substance: MELPERONE HYDROCHLORIDE
     Indication: PROPHYLAXIS
     Dosage: UNK
     Route: 065
  4. VELCADE [Suspect]
     Active Substance: BORTEZOMIB
     Indication: PLASMA CELL MYELOMA
     Dosage: 1.26 MG, UNK
     Route: 058
     Dates: start: 20150730, end: 20151022
  5. NIVESTIM [Concomitant]
     Active Substance: FILGRASTIM
     Indication: NEUTROPENIA
     Dosage: UNK
     Route: 065
  6. KIOVIG [Concomitant]
     Active Substance: HUMAN IMMUNOGLOBULIN G
     Indication: PROPHYLAXIS
     Dosage: UNK
     Route: 065
  7. LORADUR [Concomitant]
     Indication: PROPHYLAXIS
     Dosage: UNK
     Route: 065
  8. SUMETROLIM [Concomitant]
     Indication: PROPHYLAXIS
     Dosage: UNK
     Route: 065
  9. MILURIT [Concomitant]
     Active Substance: ALLOPURINOL
     Indication: PROPHYLAXIS
     Dosage: UNK
     Route: 065
  10. BETMIGA [Concomitant]
     Active Substance: MIRABEGRON
     Indication: PROPHYLAXIS
     Dosage: UNK
     Route: 065
  11. AUGMENTIN [Concomitant]
     Active Substance: AMOXICILLIN\CLAVULANATE POTASSIUM
     Indication: URINARY TRACT INFECTION
     Dosage: UNK
     Route: 065
  12. ANALGINE [Concomitant]
     Indication: NEUROPATHY PERIPHERAL
     Dosage: UNK
     Route: 065
  13. TIAPRIDAL                          /00435701/ [Concomitant]
     Active Substance: TIAPRIDE HYDROCHLORIDE
     Indication: PROPHYLAXIS
     Dosage: 111.1 MG, UNK
     Route: 065
  14. TAFLOSIN [Concomitant]
     Indication: PROPHYLAXIS
     Route: 065
  15. ZOFRAN [Concomitant]
     Active Substance: ONDANSETRON HYDROCHLORIDE
     Indication: PROPHYLAXIS
     Dosage: UNK
     Route: 065
  16. CORVATON [Concomitant]
     Active Substance: MOLSIDOMINE
     Indication: HYPERTENSION
  17. MESOCAIN [Concomitant]
     Active Substance: TRIMECAINE
     Indication: NECK PAIN
     Dosage: UNK
     Route: 065
  18. DEGAN [Concomitant]
     Active Substance: METOCLOPRAMIDE HYDROCHLORIDE
     Indication: PROPHYLAXIS
     Dosage: UNK
     Route: 065
  19. AUGMENTIN [Concomitant]
     Active Substance: AMOXICILLIN\CLAVULANATE POTASSIUM
     Indication: GASTROINTESTINAL INFECTION
     Dosage: UNK
     Route: 065
  20. GABAPENTIN. [Concomitant]
     Active Substance: GABAPENTIN
     Indication: NEUROPATHY PERIPHERAL
     Dosage: UNK
     Route: 065
  21. PREDNISONE. [Concomitant]
     Active Substance: PREDNISONE
     Indication: PLASMA CELL MYELOMA
     Dosage: 100 MG, 3/WEEK
     Route: 048
     Dates: start: 20150730, end: 20160117
  22. NOVALGIN [Concomitant]
     Active Substance: METAMIZOLE SODIUM
     Indication: NECK PAIN
     Dosage: UNK
     Route: 065
  23. CIPRINOL [Concomitant]
     Active Substance: CIPROFLOXACIN
     Indication: UPPER RESPIRATORY TRACT INFECTION
     Dosage: UNK
     Route: 065
  24. IMACORT [Concomitant]
     Active Substance: CLOTRIMAZOLE\HEXAMIDINE DIISETHIONATE\PREDNISOLONE ACETATE
     Indication: PROPHYLAXIS
     Dosage: UNK
     Route: 065
  25. DARATUMUMAB [Concomitant]
     Active Substance: DARATUMUMAB
     Indication: PLASMA CELL MYELOMA
     Dosage: 1136 MG, Q2WEEKS
     Route: 042
     Dates: start: 20150730, end: 20151112
  26. ZALDIAR [Concomitant]
     Active Substance: ACETAMINOPHEN\TRAMADOL HYDROCHLORIDE
     Indication: NECK PAIN
     Dosage: UNK
     Route: 065
  27. ANOPYRIN [Concomitant]
     Active Substance: ASPIRIN
     Indication: PROPHYLAXIS
     Dosage: UNK
     Route: 065
  28. SORTIS [Concomitant]
     Active Substance: ATORVASTATIN
     Indication: PROPHYLAXIS
     Dosage: UNK
     Route: 065
  29. TRANSTEC [Concomitant]
     Active Substance: BUPRENORPHINE
     Indication: NECK PAIN
  30. ZOVIRAX [Concomitant]
     Active Substance: ACYCLOVIR
     Indication: PROPHYLAXIS
     Dosage: UNK
     Route: 065
  31. FRAXIPARINE [Concomitant]
     Active Substance: NADROPARIN CALCIUM
     Indication: PROPHYLAXIS
     Dosage: UNK
     Route: 065
  32. ZINNAT [Concomitant]
     Active Substance: CEFUROXIME AXETIL
     Indication: UPPER RESPIRATORY TRACT INFECTION
     Dosage: UNK
     Route: 065
  33. CETIXIN [Concomitant]
     Indication: PROPHYLAXIS
     Dosage: UNK
     Route: 065
  34. DICLOFENAC                         /00372302/ [Concomitant]
     Active Substance: DICLOFENAC
     Indication: OSTEOARTHRITIS
     Route: 065
  35. ZALDIAR [Concomitant]
     Active Substance: ACETAMINOPHEN\TRAMADOL HYDROCHLORIDE
     Indication: PROPHYLAXIS
     Dosage: UNK
     Route: 065
  36. ZOMETA [Concomitant]
     Active Substance: ZOLEDRONIC ACID
     Indication: PROPHYLAXIS
     Dosage: UNK
     Route: 065
  37. HCT [Concomitant]
     Active Substance: HYDROCHLOROTHIAZIDE
     Indication: PROPHYLAXIS
     Dosage: UNK
     Route: 065
  38. NIVESTIM [Concomitant]
     Active Substance: FILGRASTIM
     Indication: PROPHYLAXIS
     Dosage: UNK
     Route: 065
  39. ALGIFEN [Concomitant]
     Indication: NECK PAIN
     Dosage: UNK
     Route: 065
  40. CORVATON [Concomitant]
     Active Substance: MOLSIDOMINE
     Indication: PROPHYLAXIS
     Dosage: UNK
     Route: 065
  41. KYTRIL [Concomitant]
     Active Substance: GRANISETRON HYDROCHLORIDE
     Indication: PROPHYLAXIS
     Dosage: UNK
     Route: 065
  42. DEXAMETHASONE. [Concomitant]
     Active Substance: DEXAMETHASONE
     Indication: PLASMA CELL MYELOMA
     Dosage: 20 MG, UNK
     Route: 042
     Dates: start: 20150730
  43. MELPHALAN [Concomitant]
     Active Substance: MELPHALAN
     Indication: PLASMA CELL MYELOMA
     Dosage: 12 MG, UNK
     Route: 048
     Dates: start: 20150730, end: 20160117
  44. TRANSTEC [Concomitant]
     Active Substance: BUPRENORPHINE
     Indication: PROPHYLAXIS
     Dosage: UNK
     Route: 065
  45. HELICID [Concomitant]
     Indication: PROPHYLAXIS
     Dosage: UNK
     Route: 065
  46. NOVALGIN [Concomitant]
     Active Substance: METAMIZOLE SODIUM
     Indication: NEUROPATHY PERIPHERAL
     Dosage: UNK
     Route: 065
  47. LACTULOSA [Concomitant]
     Active Substance: LACTULOSE
     Indication: PROPHYLAXIS
     Route: 065

REACTIONS (7)
  - Petechiae [Unknown]
  - Urinary tract infection [Unknown]
  - Gastrointestinal infection [Unknown]
  - Neutropenia [Unknown]
  - Peripheral sensory neuropathy [Recovered/Resolved]
  - Upper respiratory tract infection [Unknown]
  - Thrombocytopenia [Unknown]

NARRATIVE: CASE EVENT DATE: 20150805
